FAERS Safety Report 10246280 (Version 4)
Quarter: 2014Q3

REPORT INFORMATION
  Report Type: Spontaneous
  Country: DE (occurrence: DE)
  Receive Date: 20140619
  Receipt Date: 20140808
  Transmission Date: 20150326
  Serious: Yes (Other)
  Sender: FDA-Public Use
  Company Number: DE-ASTELLAS-2014EU007865

PATIENT
  Age: 58 Year
  Sex: Male
  Weight: 120 kg

DRUGS (5)
  1. APIDRA [Concomitant]
     Active Substance: INSULIN GLULISINE
     Indication: DIABETES MELLITUS
     Dosage: 18 IE, THRICE DAILY
     Route: 058
     Dates: start: 2012
  2. LANTUS [Concomitant]
     Active Substance: INSULIN GLARGINE
     Indication: DIABETES MELLITUS
     Dosage: 34 IE,  UNKNOWN FREQ.
     Route: 058
     Dates: start: 2012
  3. OXYCODON [Concomitant]
     Active Substance: OXYCODONE
     Indication: PAIN
     Route: 048
     Dates: start: 20140401
  4. XTANDI [Suspect]
     Active Substance: ENZALUTAMIDE
     Indication: PROSTATE CANCER
     Route: 048
     Dates: start: 20140430
  5. BISOPROLOL [Concomitant]
     Active Substance: BISOPROLOL
     Indication: HYPERTENSION
     Route: 048
     Dates: start: 2005

REACTIONS (3)
  - Blood alkaline phosphatase increased [Not Recovered/Not Resolved]
  - Musculoskeletal pain [Unknown]
  - Off label use [Unknown]

NARRATIVE: CASE EVENT DATE: 20140528
